FAERS Safety Report 7115742-7 (Version None)
Quarter: 2010Q4

REPORT INFORMATION
  Report Type: 
  Country: None (occurrence: None)
  Receive Date: 20101122
  Receipt Date: 20101115
  Transmission Date: 20110411
  Serious: Yes (Hospitalization, Other)
  Sender: FDA-Public Use
  Company Number: US-US-EMD SERONO, INC.-7008381

PATIENT
  Sex: Female
  Weight: 140 kg

DRUGS (10)
  1. REBIF [Suspect]
     Indication: MULTIPLE SCLEROSIS
     Dates: start: 20100507, end: 20100601
  2. REBIF [Suspect]
     Route: 058
     Dates: start: 20100601
  3. ADVIL [Concomitant]
  4. COUMADIN [Concomitant]
     Indication: PULMONARY EMBOLISM
     Dates: start: 20040101
  5. PREDNISONE [Concomitant]
     Indication: PREMEDICATION
  6. PREDNISONE [Concomitant]
     Indication: DRUG THERAPY
  7. NEURONTIN [Concomitant]
     Indication: MULTIPLE SCLEROSIS
  8. NEXIUM [Concomitant]
     Indication: HIATUS HERNIA
     Dates: start: 20040101
  9. LASIX [Concomitant]
     Indication: LYMPHOEDEMA
  10. DETROL [Concomitant]

REACTIONS (11)
  - BALANCE DISORDER [None]
  - DIABETES MELLITUS [None]
  - ENDOMETRIAL CANCER STAGE II [None]
  - GAIT DISTURBANCE [None]
  - HEADACHE [None]
  - HYPERHIDROSIS [None]
  - INJECTION SITE HAEMATOMA [None]
  - LETHARGY [None]
  - LISTLESS [None]
  - NAUSEA [None]
  - TOOTH EROSION [None]
